FAERS Safety Report 8054224-5 (Version None)
Quarter: 2012Q1

REPORT INFORMATION
  Report Type: 
  Country: None (occurrence: None)
  Receive Date: 20120118
  Receipt Date: 20120112
  Transmission Date: 20120608
  Serious: Yes (Death, Hospitalization, Disabling, Other)
  Sender: FDA-Public Use
  Company Number: IT-ROCHE-729635

PATIENT
  Sex: Female
  Weight: 46 kg

DRUGS (41)
  1. MIRCERA [Suspect]
     Indication: NEPHROGENIC ANAEMIA
     Dosage: LAST DOSE PRIOR TO SAE: 16 NOVEMBER 2011, DOSAGE FORM: PFS
     Route: 042
  2. MIRCERA [Suspect]
     Dosage: LAST DOSE PRIOR TO SAE: 14 JANUARY 2011.
     Route: 042
  3. DARBEPOETIN ALFA [Suspect]
     Indication: NEPHROGENIC ANAEMIA
     Dosage: NURSE MISTAKE ON 15 DEC 2010, DARBEPOTIN ALFA (BATCH 1016812) WAS ADMINISTERED.
     Route: 065
     Dates: start: 20101215, end: 20101215
  4. FUROSEMIDE [Concomitant]
  5. SEVELAMER [Concomitant]
  6. RISEDRONIC ACID [Concomitant]
  7. METOPROLOL [Concomitant]
  8. IRON GLUCONATE [Concomitant]
  9. PARICALCITOL [Concomitant]
     Dosage: REPORTED AS PARACALCITOL
  10. ACETAMINOPHEN [Concomitant]
  11. SEVELAMER CARBONATE [Concomitant]
  12. VYTORIN [Concomitant]
     Dosage: 10/20 MG DAILY
     Dates: start: 20111116
  13. LANSOPRAZOLE [Concomitant]
  14. ATORVASTATIN CALCIUM [Concomitant]
  15. VERAPAMIL [Concomitant]
  16. TELMISARTAN [Concomitant]
  17. RISEDRONIC ACID [Concomitant]
  18. DIGOXIN [Concomitant]
     Dosage: TDD: 625 GU
     Dates: start: 20100702, end: 20101124
  19. PRAVASTATIN [Concomitant]
  20. TICLOPIDINE HCL [Concomitant]
     Dates: start: 20111031
  21. RANITIDINE [Concomitant]
     Dates: start: 20111031
  22. ASPIRIN [Concomitant]
  23. ALLOPURINOL [Concomitant]
  24. MIRCERA [Suspect]
     Route: 042
  25. SEVELAMER CARBONATE [Concomitant]
  26. ASPIRIN [Concomitant]
     Dates: start: 20091226
  27. MIRCERA [Suspect]
     Dosage: LAST DOSE PRIOR TO SAE:15 NOVEMBER 2010, DOSAGE FORM: PFS
     Route: 042
  28. MIRCERA [Suspect]
     Dosage: LAST DOSE PRIOR TO SAE: 15 AUG 2011
     Route: 042
  29. PREDNISONE [Concomitant]
  30. METOPROLOL [Concomitant]
  31. AMLODIPINE [Concomitant]
  32. L-CARNITINE [Concomitant]
     Dates: start: 20100906
  33. CLOPIDOGREL [Concomitant]
  34. SEVELAMER [Concomitant]
  35. TELMISARTAN [Concomitant]
  36. DALTEPARIN SODIUM [Concomitant]
     Dates: start: 20111003
  37. CARVEDILOL [Concomitant]
  38. IMATINIB MESYLATE [Concomitant]
     Dates: start: 20110113
  39. LANTHANUM CARBONATE [Concomitant]
  40. CILOSTAZOL [Concomitant]
     Dates: start: 20111031
  41. SIMVASTATIN [Concomitant]
     Dosage: 10/20 MG
     Dates: start: 20111116

REACTIONS (8)
  - MYOCARDIAL ISCHAEMIA [None]
  - LETHARGY [None]
  - ANGINA PECTORIS [None]
  - MYOCARDIAL INFARCTION [None]
  - SPINAL COMPRESSION FRACTURE [None]
  - PERIPHERAL ISCHAEMIA [None]
  - CHRONIC MYELOID LEUKAEMIA [None]
  - CEREBRAL ISCHAEMIA [None]
